FAERS Safety Report 9245533 (Version 1)
Quarter: 2013Q2

REPORT INFORMATION
  Report Type: Spontaneous
  Country: US (occurrence: US)
  Receive Date: 20130422
  Receipt Date: 20130422
  Transmission Date: 20140414
  Serious: No
  Sender: FDA-Public Use
  Company Number: US-PFIZER INC-2013094437

PATIENT
  Age: 85 Year
  Sex: Male

DRUGS (3)
  1. SUTENT [Suspect]
     Indication: RENAL CELL CARCINOMA
     Dosage: 37.5 MG, 1X/DAY
     Route: 048
     Dates: start: 20121226
  2. SUTENT [Suspect]
     Indication: CLEAR CELL RENAL CELL CARCINOMA
  3. KAYEXALATE [Concomitant]
     Indication: BLOOD POTASSIUM INCREASED
     Dosage: 30 G, 2X/DAY
     Route: 048
     Dates: start: 20121002

REACTIONS (3)
  - Nausea [Recovered/Resolved]
  - Fall [Unknown]
  - Skin ulcer [Unknown]
